FAERS Safety Report 16331759 (Version 1)
Quarter: 2019Q2

REPORT INFORMATION
  Report Type: Spontaneous
  Country: US (occurrence: US)
  Receive Date: 20190412
  Receipt Date: 20190412
  Transmission Date: 20190711
  Serious: No
  Sender: FDA-Public Use
  Company Number: None

PATIENT
  Age: 35 Year
  Sex: Female

DRUGS (1)
  1. HEPARIN SOD IJ 5000U/ML SDV [Suspect]
     Active Substance: HEPARIN SODIUM
     Dosage: ?          OTHER STRENGTH:5000 U/ML;?
     Route: 058
     Dates: start: 201904

REACTIONS (1)
  - Off label use [None]

NARRATIVE: CASE EVENT DATE: 20190412
